FAERS Safety Report 23981351 (Version 1)
Quarter: 2024Q2

REPORT INFORMATION
  Report Type: Spontaneous
  Country: FR (occurrence: FR)
  Receive Date: 20240617
  Receipt Date: 20240617
  Transmission Date: 20240716
  Serious: Yes (Death, Other)
  Sender: FDA-Public Use
  Company Number: FR-AFSSAPS-GR2024000700

PATIENT
  Age: 92 Year
  Sex: Female

DRUGS (2)
  1. LEVOFLOXACIN HEMIHYDRATE [Suspect]
     Active Substance: LEVOFLOXACIN
     Indication: Pneumonia
     Dosage: 500 MILLIGRAM, ONCE A DAY
     Route: 048
     Dates: start: 20240518, end: 20240519
  2. CEFEPIME [Suspect]
     Active Substance: CEFEPIME HYDROCHLORIDE
     Indication: Pneumonia
     Dosage: 2 GRAM
     Route: 042
     Dates: start: 20240518, end: 20240520

REACTIONS (1)
  - Status epilepticus [Fatal]

NARRATIVE: CASE EVENT DATE: 20240518
